FAERS Safety Report 4530603-5 (Version None)
Quarter: 2004Q4

REPORT INFORMATION
  Report Type: 
  Country: None (occurrence: None)
  Receive Date: 20041216
  Receipt Date: 20041216
  Transmission Date: 20050328
  Serious: Yes (Hospitalization)
  Sender: FDA-Public Use
  Company Number: None

PATIENT
  Age: 64 Year
  Sex: Male
  Weight: 87.0906 kg

DRUGS (1)
  1. L-TRYPTOPHAN [Suspect]
     Indication: SOMNOLENCE
     Dosage: 500 MG DAILY
     Dates: start: 19890101, end: 19950101

REACTIONS (11)
  - ARTHRALGIA [None]
  - BURNING SENSATION [None]
  - CHEST PAIN [None]
  - CONDITION AGGRAVATED [None]
  - DYSPNOEA [None]
  - FEELING ABNORMAL [None]
  - HYPERHIDROSIS [None]
  - HYPOAESTHESIA [None]
  - LOSS OF CONSCIOUSNESS [None]
  - PAIN [None]
  - WHITE BLOOD CELL COUNT INCREASED [None]
